FAERS Safety Report 5696019-3 (Version None)
Quarter: 2008Q2

REPORT INFORMATION
  Report Type: 
  Country: None (occurrence: None)
  Receive Date: 20080407
  Receipt Date: 20080327
  Transmission Date: 20081010
  Serious: Yes (Hospitalization)
  Sender: FDA-Public Use
  Company Number: A0701769A

PATIENT
  Age: 79 Year
  Sex: Female
  Weight: 57.7 kg

DRUGS (2)
  1. VERAMYST [Suspect]
     Indication: DRUG USE FOR UNKNOWN INDICATION
     Route: 045
     Dates: start: 20070801
  2. MUCINEX [Concomitant]

REACTIONS (7)
  - DYSPHAGIA [None]
  - EPISTAXIS [None]
  - NASAL DRYNESS [None]
  - PHARYNGEAL OEDEMA [None]
  - PHARYNGITIS [None]
  - PHARYNGOLARYNGEAL PAIN [None]
  - RHINITIS [None]
